FAERS Safety Report 24980000 (Version 4)
Quarter: 2025Q2

REPORT INFORMATION
  Report Type: Spontaneous
  Country: US (occurrence: US)
  Receive Date: 20250218
  Receipt Date: 20250529
  Transmission Date: 20250716
  Serious: Yes (Other)
  Sender: CATALYST PHARMA
  Company Number: US-CATALYST PHARMACEUTICALS-US-CATA-25-00195

PATIENT
  Sex: Male

DRUGS (5)
  1. AGAMREE [Suspect]
     Active Substance: VAMOROLONE
     Indication: Duchenne muscular dystrophy
     Dosage: 6 MG/KG/DAY
     Route: 048
     Dates: start: 202403
  2. PREDNISONE [Suspect]
     Active Substance: PREDNISONE
     Indication: Gene therapy
     Dosage: 2 MG/KG DAILY
     Route: 048
     Dates: start: 202409, end: 202412
  3. PREDNISONE [Suspect]
     Active Substance: PREDNISONE
     Indication: Liver injury
  4. DELANDISTROGENE MOXEPARVOVEC-ROKL [Suspect]
     Active Substance: DELANDISTROGENE MOXEPARVOVEC-ROKL
     Indication: Product used for unknown indication
     Route: 042
     Dates: start: 202409
  5. METHYLPREDNISOLONE [Concomitant]
     Active Substance: METHYLPREDNISOLONE
     Indication: Liver injury
     Dosage: 1 G DAILY SEVEN DAYS
     Route: 042
     Dates: start: 202410, end: 202410

REACTIONS (1)
  - Liver injury [Recovered/Resolved]

NARRATIVE: CASE EVENT DATE: 20241001
